FAERS Safety Report 20675565 (Version 4)
Quarter: 2022Q2

REPORT INFORMATION
  Report Type: Report from Study
  Country: IT (occurrence: IT)
  Receive Date: 20220405
  Receipt Date: 20220411
  Transmission Date: 20220721
  Serious: Yes (Death, Hospitalization)
  Sender: FDA-Public Use
  Company Number: IT-KARYOPHARM-2022KPT000399

PATIENT
  Age: 73 Year
  Sex: Male
  Weight: 72 kg

DRUGS (6)
  1. SELINEXOR [Suspect]
     Active Substance: SELINEXOR
     Indication: Richter^s syndrome
     Dosage: 80 MG, WEEKLY
     Route: 048
     Dates: start: 20211227, end: 202202
  2. SELINEXOR [Suspect]
     Active Substance: SELINEXOR
     Dosage: 100 MG, WEEKLY
     Route: 048
     Dates: start: 202202, end: 20220226
  3. ALLOPURINOL [Concomitant]
     Active Substance: ALLOPURINOL
     Indication: Hyperuricaemia
     Dosage: 300 MG, QD
     Dates: start: 20210504
  4. FONDAPARINUX [Concomitant]
     Active Substance: FONDAPARINUX
     Indication: Atrial fibrillation
     Dosage: 1.5 UNK, QD
     Dates: start: 20200223
  5. ACYCLOVIR [Concomitant]
     Active Substance: ACYCLOVIR
     Indication: Herpes zoster
     Dosage: 400 MG, QD
     Dates: start: 20161010
  6. ERYTHROPOETIN [EPOETIN ALFA] [Concomitant]
     Indication: Anaemia
     Dosage: 40000 IU, WEEKLY
     Dates: start: 20201223

REACTIONS (2)
  - Sepsis [Fatal]
  - Richter^s syndrome [Unknown]

NARRATIVE: CASE EVENT DATE: 20220101
